FAERS Safety Report 16775354 (Version 2)
Quarter: 2019Q3

REPORT INFORMATION
  Report Type: Spontaneous
  Country: DE (occurrence: DE)
  Receive Date: 20190905
  Receipt Date: 20190910
  Transmission Date: 20191005
  Serious: Yes (Death, Other)
  Sender: FDA-Public Use
  Company Number: PHHY2019DE204449

PATIENT
  Sex: Female

DRUGS (1)
  1. GENTAMICIN. [Suspect]
     Active Substance: GENTAMICIN
     Indication: EPIDERMOLYSIS BULLOSA
     Dosage: UNK
     Route: 062

REACTIONS (7)
  - Multiple organ dysfunction syndrome [Unknown]
  - Sepsis [Fatal]
  - Skin wound [Unknown]
  - Anaemia [Unknown]
  - Renal disorder [Unknown]
  - Shock [Unknown]
  - Product use in unapproved indication [Unknown]
